FAERS Safety Report 16764336 (Version 1)
Quarter: 2019Q3

REPORT INFORMATION
  Report Type: Spontaneous
  Country: US (occurrence: US)
  Receive Date: 20190712
  Receipt Date: 20190712
  Transmission Date: 20191005
  Serious: No
  Sender: FDA-Public Use
  Company Number: None

PATIENT
  Age: 20 Year
  Sex: Female

DRUGS (1)
  1. TOBRAMYCIN NEB 300MG/ML [Suspect]
     Active Substance: TOBRAMYCIN
     Indication: CYSTIC FIBROSIS

REACTIONS (3)
  - Product dose omission [None]
  - Chest pain [None]
  - Lung infection [None]

NARRATIVE: CASE EVENT DATE: 20190712
